FAERS Safety Report 18088922 (Version 4)
Quarter: 2020Q4

REPORT INFORMATION
  Report Type: Report from Study
  Country: CO (occurrence: CO)
  Receive Date: 20200729
  Receipt Date: 20201222
  Transmission Date: 20210113
  Serious: Yes (Hospitalization, Other)
  Sender: FDA-Public Use
  Company Number: NVSC2020CO211000

PATIENT
  Sex: Female
  Weight: 62 kg

DRUGS (3)
  1. KISQALI [Suspect]
     Active Substance: RIBOCICLIB
     Indication: BREAST CANCER METASTATIC
     Dosage: 600 MG, QD
     Route: 048
     Dates: start: 201901
  2. FULVESTRANT. [Suspect]
     Active Substance: FULVESTRANT
     Indication: PRODUCT USED FOR UNKNOWN INDICATION
     Dosage: UNK
     Route: 065
  3. KISQALI [Suspect]
     Active Substance: RIBOCICLIB
     Dosage: 600 MG, QD
     Route: 048
     Dates: start: 20190216

REACTIONS (11)
  - Vaginal haemorrhage [Recovered/Resolved]
  - Metastases to lung [Unknown]
  - Metastases to bone [Unknown]
  - Pleural effusion [Unknown]
  - Limb discomfort [Unknown]
  - Vomiting [Unknown]
  - Pleural effusion [Recovered/Resolved]
  - Drug ineffective [Unknown]
  - Pain [Unknown]
  - Musculoskeletal chest pain [Unknown]
  - Metastases to liver [Unknown]
